FAERS Safety Report 4423929-7 (Version None)
Quarter: 2004Q3

REPORT INFORMATION
  Report Type: 
  Country: None (occurrence: None)
  Receive Date: 20040812
  Receipt Date: 20040809
  Transmission Date: 20050211
  Serious: Yes (Life-Threatening)
  Sender: FDA-Public Use
  Company Number: PHNU2004DE02797

PATIENT
  Age: 69 Year
  Sex: Male
  Weight: 72 kg

DRUGS (3)
  1. LAMISIL [Suspect]
     Indication: TINEA PEDIS
     Dosage: 250 MG, QD
     Route: 048
     Dates: start: 20040506
  2. PROPOFOL [Suspect]
     Route: 042
     Dates: start: 20040513, end: 20040513
  3. AMOXICILLIN [Suspect]
     Dosage: UNK, UNK
     Route: 048
     Dates: start: 20040513

REACTIONS (3)
  - CARDIAC ARREST [None]
  - EPILEPSY [None]
  - RESPIRATORY ARREST [None]
